FAERS Safety Report 23520418 (Version 1)
Quarter: 2024Q1

REPORT INFORMATION
  Report Type: Spontaneous
  Country: IT (occurrence: IT)
  Receive Date: 20240214
  Receipt Date: 20240214
  Transmission Date: 20240409
  Serious: Yes (Other)
  Sender: FDA-Public Use
  Company Number: IT-CELLTRION INC.-2024IT003342

PATIENT

DRUGS (1)
  1. YUFLYMA [Suspect]
     Active Substance: ADALIMUMAB-AATY
     Indication: Juvenile idiopathic arthritis
     Dosage: 40 MG, 1 CYCLE
     Route: 058
     Dates: start: 202307, end: 202310

REACTIONS (3)
  - Juvenile idiopathic arthritis [Not Recovered/Not Resolved]
  - Antinuclear antibody positive [Not Recovered/Not Resolved]
  - Anti-nucleosome antibody [Not Recovered/Not Resolved]

NARRATIVE: CASE EVENT DATE: 20231030
